FAERS Safety Report 5876855-0 (Version None)
Quarter: 2008Q3

REPORT INFORMATION
  Report Type: 
  Country: None (occurrence: None)
  Receive Date: 20080908
  Receipt Date: 20080822
  Transmission Date: 20090109
  Serious: Yes (Other)
  Sender: FDA-Public Use
  Company Number: DSA_62257_2008

PATIENT
  Age: 81 Year
  Sex: Female
  Weight: 65.7716 kg

DRUGS (7)
  1. MYSOLINE [Suspect]
     Indication: EPILEPSY
     Dosage: 50 MG 8X/DAY ORAL), (50 MG BID ORAL)
     Route: 048
     Dates: start: 20080701, end: 20080801
  2. MYSOLINE [Suspect]
     Indication: EPILEPSY
     Dosage: 50 MG 8X/DAY ORAL), (50 MG BID ORAL)
     Route: 048
     Dates: start: 20080801
  3. MYSOLINE [Suspect]
     Indication: EPILEPSY
     Dosage: 250 MG BID ORAL, 375 MG QD 1 + 1/2 - 250 MG TABLETS DAILY ORAL), (250 MG QD ORAL)
     Route: 048
     Dates: start: 20080501, end: 20080501
  4. MYSOLINE [Suspect]
     Indication: EPILEPSY
     Dosage: 250 MG BID ORAL, 375 MG QD 1 + 1/2 - 250 MG TABLETS DAILY ORAL), (250 MG QD ORAL)
     Route: 048
     Dates: end: 20080501
  5. MYSOLINE [Suspect]
     Indication: EPILEPSY
     Dosage: 250 MG BID ORAL, 375 MG QD 1 + 1/2 - 250 MG TABLETS DAILY ORAL), (250 MG QD ORAL)
     Route: 048
     Dates: start: 20080501, end: 20080701
  6. COUMADIN [Concomitant]
  7. VASOTEC [Concomitant]

REACTIONS (5)
  - DIZZINESS [None]
  - MENTAL IMPAIRMENT [None]
  - PRURITUS [None]
  - THINKING ABNORMAL [None]
  - VISION BLURRED [None]
